FAERS Safety Report 12898317 (Version 1)
Quarter: 2016Q4

REPORT INFORMATION
  Report Type: Spontaneous
  Country: GB (occurrence: GB)
  Receive Date: 20161031
  Receipt Date: 20161031
  Transmission Date: 20170207
  Serious: Yes (Other)
  Sender: FDA-Public Use
  Company Number: GB-ABBVIE-16P-167-1749072-00

PATIENT
  Age: 41 Year
  Sex: Female

DRUGS (1)
  1. HUMIRA [Suspect]
     Active Substance: ADALIMUMAB
     Indication: PSORIASIS
     Route: 058
     Dates: start: 200903, end: 20160927

REACTIONS (2)
  - Neuropathy peripheral [Not Recovered/Not Resolved]
  - Brachial plexopathy [Not Recovered/Not Resolved]

NARRATIVE: CASE EVENT DATE: 201401
